FAERS Safety Report 4823773-2 (Version None)
Quarter: 2005Q4

REPORT INFORMATION
  Report Type: 
  Country: None (occurrence: None)
  Receive Date: 20051107
  Receipt Date: 20051028
  Transmission Date: 20060501
  Serious: Yes (Hospitalization)
  Sender: FDA-Public Use
  Company Number: 2005148908

PATIENT
  Sex: 0

DRUGS (2)
  1. LIPITOR [Suspect]
     Indication: ILL-DEFINED DISORDER
  2. KETEK [Suspect]
     Indication: ILL-DEFINED DISORDER
     Dosage: 800 MG (800 MG, 1 IN 1 D), ORAL
     Route: 048

REACTIONS (1)
  - HEPATIC FAILURE [None]
